FAERS Safety Report 4433699-4 (Version None)
Quarter: 2004Q3

REPORT INFORMATION
  Report Type: 
  Country: None (occurrence: None)
  Receive Date: 20040825
  Receipt Date: 20040825
  Transmission Date: 20050211
  Serious: Yes (Other)
  Sender: FDA-Public Use
  Company Number: None

PATIENT
  Sex: Female
  Weight: 28.123 kg

DRUGS (1)
  1. ATOMOXETINE 40 MG (ELI LILLY) [Suspect]
     Indication: ATTENTION DEFICIT/HYPERACTIVITY DISORDER
     Dosage: 40 MG DAILY
     Dates: start: 20040401

REACTIONS (2)
  - ILL-DEFINED DISORDER [None]
  - STOMACH DISCOMFORT [None]
